FAERS Safety Report 10688739 (Version 1)
Quarter: 2015Q1

REPORT INFORMATION
  Report Type: Spontaneous
  Country: US (occurrence: US)
  Receive Date: 20150103
  Receipt Date: 20150103
  Transmission Date: 20150720
  Serious: No
  Sender: FDA-Public Use
  Company Number: US-EMD SERONO-8003144

PATIENT
  Sex: Male

DRUGS (1)
  1. REBIF [Suspect]
     Active Substance: INTERFERON BETA-1A
     Indication: PRODUCT USED FOR UNKNOWN INDICATION

REACTIONS (7)
  - Asthenopia [Not Recovered/Not Resolved]
  - Injection site nodule [Unknown]
  - Injection site erythema [Unknown]
  - Cough [Unknown]
  - Blepharospasm [Not Recovered/Not Resolved]
  - Irritable bowel syndrome [Unknown]
  - Lower respiratory tract infection [Unknown]

NARRATIVE: CASE EVENT DATE: 2013
